FAERS Safety Report 11727334 (Version 1)
Quarter: 2015Q4

REPORT INFORMATION
  Report Type: Spontaneous
  Country: US (occurrence: US)
  Receive Date: 20151112
  Receipt Date: 20151112
  Transmission Date: 20160304
  Serious: No
  Sender: FDA-Public Use
  Company Number: US-PFIZER INC-2015371493

PATIENT
  Age: 24 Year
  Sex: Female
  Weight: 122 kg

DRUGS (1)
  1. ADVIL [Suspect]
     Active Substance: IBUPROFEN
     Indication: CHEST PAIN
     Dosage: 2 CAPSULES, ONLY TOOK IT ONCE, AT NIGHT
     Dates: start: 200501, end: 200501

REACTIONS (3)
  - Hypokinesia [Recovered/Resolved]
  - Drug ineffective [Recovered/Resolved]
  - Wheezing [Recovered/Resolved]

NARRATIVE: CASE EVENT DATE: 200501
